FAERS Safety Report 20359007 (Version 1)
Quarter: 2022Q1

REPORT INFORMATION
  Report Type: Spontaneous
  Country: US (occurrence: US)
  Receive Date: 20220120
  Receipt Date: 20220120
  Transmission Date: 20220423
  Serious: No
  Sender: FDA-Public Use
  Company Number: US-TERSERA THERAPEUTICS LLC-2021TRS000541

PATIENT

DRUGS (2)
  1. PRIALT [Suspect]
     Active Substance: ZICONOTIDE ACETATE
     Indication: Pain
     Dosage: UNK
     Route: 037
     Dates: start: 2017, end: 2019
  2. PRIALT [Suspect]
     Active Substance: ZICONOTIDE ACETATE
     Indication: Post laminectomy syndrome

REACTIONS (2)
  - Bone pain [Unknown]
  - Drug ineffective [Unknown]
